FAERS Safety Report 4937345-2 (Version None)
Quarter: 2006Q1

REPORT INFORMATION
  Report Type: 
  Country: None (occurrence: None)
  Receive Date: 20060309
  Receipt Date: 20060226
  Transmission Date: 20060701
  Serious: Yes (Congenital Anomaly)
  Sender: FDA-Public Use
  Company Number: JP-KINGPHARMUSA00001-K200600286

PATIENT
  Sex: Male

DRUGS (1)
  1. METHIMAZOLE TABLETS, USP [Suspect]
     Dosage: 10 MG, QD
     Route: 064

REACTIONS (3)
  - APLASIA CUTIS CONGENITA [None]
  - DRUG EXPOSURE DURING PREGNANCY [None]
  - SKULL MALFORMATION [None]
